FAERS Safety Report 23902296 (Version 1)
Quarter: 2024Q2

REPORT INFORMATION
  Report Type: Spontaneous
  Country: US (occurrence: None)
  Receive Date: 20240527
  Receipt Date: 20240527
  Transmission Date: 20240716
  Serious: No
  Sender: FDA-Public Use
  Company Number: US-ROCHE-3412550

PATIENT
  Sex: Female

DRUGS (3)
  1. ACTEMRA [Suspect]
     Active Substance: TOCILIZUMAB
     Indication: Fibromyalgia
     Route: 058
  2. ACTEMRA [Suspect]
     Active Substance: TOCILIZUMAB
  3. TYLENOL [Concomitant]
     Active Substance: ACETAMINOPHEN

REACTIONS (3)
  - Systemic lupus erythematosus [Not Recovered/Not Resolved]
  - Pain [Not Recovered/Not Resolved]
  - Musculoskeletal stiffness [Not Recovered/Not Resolved]
